FAERS Safety Report 13857739 (Version 1)
Quarter: 2017Q3

REPORT INFORMATION
  Report Type: Spontaneous
  Country: DE (occurrence: DE)
  Receive Date: 20170811
  Receipt Date: 20170811
  Transmission Date: 20171127
  Serious: Yes (Other)
  Sender: FDA-Public Use
  Company Number: PHHY2017DE115094

PATIENT
  Age: 41 Year
  Sex: Female

DRUGS (2)
  1. TENOFOVIR DISOPROXIL [Suspect]
     Active Substance: TENOFOVIR DISOPROXIL
     Indication: CHRONIC HEPATITIS B
     Route: 065
     Dates: end: 2013
  2. ENTECAVIR. [Suspect]
     Active Substance: ENTECAVIR
     Indication: CHRONIC HEPATITIS B
     Route: 065
     Dates: end: 2013

REACTIONS (3)
  - Drug resistance [Unknown]
  - Drug effect incomplete [Unknown]
  - Gene mutation [Unknown]

NARRATIVE: CASE EVENT DATE: 201206
